FAERS Safety Report 26084694 (Version 3)
Quarter: 2025Q4

REPORT INFORMATION
  Report Type: Report from Study
  Country: CA (occurrence: CA)
  Receive Date: 20251124
  Receipt Date: 20251222
  Transmission Date: 20260118
  Serious: Yes (Other)
  Sender: ABBVIE
  Company Number: CA-ABBVIE-6560807

PATIENT
  Age: 70 Year
  Sex: Male

DRUGS (2)
  1. LUPRON [Suspect]
     Active Substance: LEUPROLIDE ACETATE
     Indication: Prostate cancer
     Dosage: FORM STRENGTH- 22.5 MG?DOSE FORM- POWDER AND SOLVENT FOR SUSPENSION FOR INJECTION IN PRE-FILLED S...
     Route: 065
     Dates: start: 20250826
  2. LUPRON [Suspect]
     Active Substance: LEUPROLIDE ACETATE
     Dosage: FORM STRENGTH- 22.5 MG?DOSE FORM- POWDER AND SOLVENT FOR SUSPENSION FOR INJECTION IN PRE-FILLED S...
     Route: 065
     Dates: start: 20251119

REACTIONS (2)
  - Blindness [Unknown]
  - Deafness [Unknown]

NARRATIVE: CASE EVENT DATE: 20250101
